FAERS Safety Report 16535680 (Version 6)
Quarter: 2019Q3

REPORT INFORMATION
  Report Type: Spontaneous
  Country: US (occurrence: US)
  Receive Date: 20190705
  Receipt Date: 20190827
  Transmission Date: 20191004
  Serious: No
  Sender: FDA-Public Use
  Company Number: US-PFIZER INC-2019287506

PATIENT
  Sex: Female
  Weight: 62 kg

DRUGS (1)
  1. CELEBREX [Suspect]
     Active Substance: CELECOXIB
     Dosage: 200 MG, DAILY
     Route: 048

REACTIONS (4)
  - Mobility decreased [Unknown]
  - Gait inability [Unknown]
  - Pain [Unknown]
  - Confusional state [Unknown]
